FAERS Safety Report 6076383-6 (Version None)
Quarter: 2009Q1

REPORT INFORMATION
  Report Type: 
  Country: None (occurrence: None)
  Receive Date: 20090210
  Receipt Date: 20090126
  Transmission Date: 20090719
  Serious: Yes (Hospitalization)
  Sender: FDA-Public Use
  Company Number: 166470

PATIENT
  Age: 72 Year
  Sex: Male

DRUGS (14)
  1. CARBOPLATIN [Suspect]
     Indication: NON-SMALL CELL LUNG CANCER
     Dosage: 460 MG, ONCE EVERY THREE WEEKS, INTRAVENOUS
     Route: 042
  2. PACLITAXEL [Suspect]
     Indication: NON-SMALL CELL LUNG CANCER
     Dosage: 385 MG, EVERY THREE WEEKS, INTRAVENOUS
     Route: 042
  3. () [Suspect]
     Indication: NON-SMALL CELL LUNG CANCER
     Dosage: 3 MG, TWICE A DAY
     Dates: start: 20081113, end: 20090102
  4. PERINDOPRIL ERBUMINE [Concomitant]
  5. VALPROATE SODIUM [Concomitant]
  6. (CEFALEXIN) [Concomitant]
  7. ACETAMINOPHEN W/ CODEINE [Concomitant]
  8. (MOVICOL /01053601/) [Concomitant]
  9. (SALBUTAMOL) [Concomitant]
  10. IPRATROPIUM BROMIDE [Concomitant]
  11. (CO-AMOXICLAV /00756801/) [Concomitant]
  12. LANSOPRAZOLE [Concomitant]
  13. (BONJELA /00239201/) [Concomitant]
  14. CHLORHEXIDINE GLUCONATE [Concomitant]

REACTIONS (8)
  - ANOREXIA [None]
  - BALANCE DISORDER [None]
  - CANDIDIASIS [None]
  - CONFUSIONAL STATE [None]
  - DYSPNOEA [None]
  - FATIGUE [None]
  - PAIN [None]
  - URINARY TRACT INFECTION [None]
